FAERS Safety Report 18941120 (Version 1)
Quarter: 2021Q1

REPORT INFORMATION
  Report Type: Spontaneous
  Country: US (occurrence: US)
  Receive Date: 20210225
  Receipt Date: 20210225
  Transmission Date: 20210420
  Serious: No
  Sender: FDA-Public Use
  Company Number: US-PFIZER INC-2021155033

PATIENT
  Age: 50 Year
  Sex: Female

DRUGS (3)
  1. IMURAN [Interacting]
     Active Substance: AZATHIOPRINE
     Dosage: UNK
  2. PREDNISONE. [Interacting]
     Active Substance: PREDNISONE
     Dosage: UNK
  3. XELJANZ XR [Suspect]
     Active Substance: TOFACITINIB CITRATE
     Dosage: 11 MG
     Dates: start: 20200209

REACTIONS (1)
  - Drug interaction [Unknown]
